FAERS Safety Report 5192063-3 (Version None)
Quarter: 2006Q4

REPORT INFORMATION
  Report Type: 
  Country: None (occurrence: None)
  Receive Date: 20061220
  Receipt Date: 20061218
  Transmission Date: 20070319
  Serious: Yes (Hospitalization)
  Sender: FDA-Public Use
  Company Number: CFT Y-1756 1

PATIENT
  Age: 16 Year
  Sex: Male

DRUGS (2)
  1. CEFDITOREN PIVOXIL 100MG [Suspect]
     Indication: INFECTION PROPHYLAXIS
     Dosage: 100 MG/DAY ORAL
     Route: 048
     Dates: start: 20061129, end: 20061203
  2. CLINORIL [Concomitant]

REACTIONS (2)
  - ERYTHEMA [None]
  - PYREXIA [None]
